FAERS Safety Report 19770463 (Version 1)
Quarter: 2021Q3

REPORT INFORMATION
  Report Type: Spontaneous
  Country: US (occurrence: US)
  Receive Date: 20210831
  Receipt Date: 20210831
  Transmission Date: 20211014
  Serious: No
  Sender: FDA-Public Use
  Company Number: None

PATIENT
  Age: 68 Year
  Sex: Female
  Weight: 51.3 kg

DRUGS (17)
  1. CALCIUM [Concomitant]
     Active Substance: CALCIUM
  2. MELATONIN [Concomitant]
     Active Substance: MELATONIN
  3. PREGNENOLONE [Concomitant]
     Active Substance: PREGNENOLONE
  4. VITAMIN D [Concomitant]
     Active Substance: VITAMIN D NOS
  5. SULFACETAMIDE. [Concomitant]
     Active Substance: SULFACETAMIDE
  6. TESTOSTERONE. [Concomitant]
     Active Substance: TESTOSTERONE
  7. PROGESTERONE? COMPOUND [Concomitant]
  8. PROLOTHERAPHY INJECTIONS [Concomitant]
  9. MULTIVITAMINS [Concomitant]
     Active Substance: VITAMINS
  10. OCULAR HEALTH TABS [Concomitant]
  11. ESTROGEN BLEND BIO?IDENTICAL [Concomitant]
  12. GLUCOSAMINE [Concomitant]
     Active Substance: GLUCOSAMINE
  13. ZINC. [Concomitant]
     Active Substance: ZINC
  14. PROLIA [Suspect]
     Active Substance: DENOSUMAB
     Indication: OSTEOPOROSIS
     Dosage: ?          OTHER FREQUENCY:EVERY 6 MONTHS;?
     Route: 030
     Dates: start: 20210802, end: 20210803
  15. METROCREAM [Concomitant]
     Active Substance: METRONIDAZOLE
  16. CLINDAMYCIN. [Concomitant]
     Active Substance: CLINDAMYCIN
  17. SOOLANTRA [Concomitant]
     Active Substance: IVERMECTIN

REACTIONS (5)
  - Type IV hypersensitivity reaction [None]
  - Urticaria [None]
  - Burning sensation [None]
  - Pruritus [None]
  - Blood pressure increased [None]

NARRATIVE: CASE EVENT DATE: 20210811
